FAERS Safety Report 23513477 (Version 1)
Quarter: 2024Q1

REPORT INFORMATION
  Report Type: Spontaneous
  Country: PT (occurrence: PT)
  Receive Date: 20240212
  Receipt Date: 20240212
  Transmission Date: 20240410
  Serious: Yes (Hospitalization)
  Sender: FDA-Public Use
  Company Number: PT-AMGEN-PRTSP2024025410

PATIENT
  Age: 29 Year
  Sex: Female

DRUGS (19)
  1. DARBEPOETIN ALFA [Suspect]
     Active Substance: DARBEPOETIN ALFA
     Indication: Nephrogenic anaemia
     Dosage: UNK
     Route: 065
  2. DARBEPOETIN ALFA [Suspect]
     Active Substance: DARBEPOETIN ALFA
     Indication: Chronic kidney disease
     Dosage: UNK, QWK (ONCE A WEEK) (DOSING WAS INCREASED)
     Route: 065
  3. DARBEPOETIN ALFA [Suspect]
     Active Substance: DARBEPOETIN ALFA
     Indication: Chronic kidney disease-mineral and bone disorder
  4. IRON [Concomitant]
     Active Substance: IRON
     Indication: Nephrogenic anaemia
     Dosage: UNK
     Route: 042
  5. IRON [Concomitant]
     Active Substance: IRON
     Indication: Chronic kidney disease
     Dosage: DOSING WAS INCREASED
     Route: 042
  6. IRON [Concomitant]
     Active Substance: IRON
     Indication: Chronic kidney disease-mineral and bone disorder
  7. VITAMIN D [Concomitant]
     Active Substance: VITAMIN D NOS
     Indication: Nephrogenic anaemia
  8. VITAMIN D [Concomitant]
     Active Substance: VITAMIN D NOS
     Indication: Chronic kidney disease
  9. VITAMIN D [Concomitant]
     Active Substance: VITAMIN D NOS
     Indication: Chronic kidney disease-mineral and bone disorder
  10. HEPARIN [Concomitant]
     Active Substance: HEPARIN SODIUM
     Indication: Anticoagulant therapy
     Route: 065
  11. ENOXAPARIN [Concomitant]
     Active Substance: ENOXAPARIN
     Indication: Anticoagulant therapy
     Route: 065
  12. IRON SUCROSE [Concomitant]
     Active Substance: IRON SUCROSE
     Route: 042
  13. FUROSEMIDE [Concomitant]
     Active Substance: FUROSEMIDE
     Indication: Hypertension
     Dosage: UNK
     Route: 065
  14. METHYLDOPA [Concomitant]
     Active Substance: METHYLDOPA
     Indication: Hypertension
     Dosage: UNK
     Route: 065
  15. CARVEDILOL [Concomitant]
     Active Substance: CARVEDILOL
     Indication: Hypertension
     Dosage: UNK
     Route: 065
  16. NIFEDIPINE [Concomitant]
     Active Substance: NIFEDIPINE
     Indication: Hypertension
     Dosage: UNK
     Route: 065
  17. VITAMINS [Concomitant]
     Active Substance: VITAMINS
     Dosage: UNK
     Route: 065
  18. CALCIUM CARBONATE [Concomitant]
     Active Substance: CALCIUM CARBONATE
     Dosage: UNK
     Route: 065
  19. FOLIC ACID [Concomitant]
     Active Substance: FOLIC ACID
     Dosage: UNK
     Route: 065

REACTIONS (4)
  - Foetal monitoring [Unknown]
  - Premature separation of placenta [Unknown]
  - Blood pressure fluctuation [Unknown]
  - Maternal exposure during pregnancy [Unknown]
